FAERS Safety Report 8391154-3 (Version None)
Quarter: 2012Q2

REPORT INFORMATION
  Report Type: 
  Country: None (occurrence: None)
  Receive Date: 20120529
  Receipt Date: 20120515
  Transmission Date: 20120825
  Serious: Yes (Other)
  Sender: FDA-Public Use
  Company Number: AT-ELI_LILLY_AND_COMPANY-AT201205005875

PATIENT
  Age: 60 Year
  Sex: Female

DRUGS (6)
  1. SEROQUEL [Concomitant]
     Dosage: UNK, UNKNOWN
  2. PANTOPRAZOLE SODIUM [Concomitant]
     Dosage: UNK, UNKNOWN
  3. METFORMIN HYDROCHLORIDE [Concomitant]
     Dosage: UNK, UNKNOWN
  4. NEURONTIN [Concomitant]
     Dosage: UNK, UNKNOWN
  5. CYMBALTA [Suspect]
     Dosage: 60 MG, QD
     Dates: end: 20120501
  6. HALCION [Concomitant]
     Dosage: UNK, UNKNOWN

REACTIONS (3)
  - ORAL MUCOSAL ERYTHEMA [None]
  - ORAL DISCOMFORT [None]
  - MOUTH HAEMORRHAGE [None]
